FAERS Safety Report 8419497-5 (Version None)
Quarter: 2012Q2

REPORT INFORMATION
  Report Type: 
  Country: None (occurrence: None)
  Receive Date: 20120604
  Receipt Date: 20120604
  Transmission Date: 20120825
  Serious: Yes (Other)
  Sender: FDA-Public Use
  Company Number: None

PATIENT
  Age: 45 Year
  Sex: Female
  Weight: 129.2752 kg

DRUGS (2)
  1. LISINOPRIL [Suspect]
     Indication: HYPERTENSION
     Dosage: 1 TAB DAILY PO
     Route: 048
     Dates: start: 20120127, end: 20120303
  2. LISINOPRIL [Suspect]
     Indication: HYPERTENSION
     Dosage: 1 TAB DAILY PO
     Route: 048
     Dates: start: 20120111, end: 20120125

REACTIONS (10)
  - HYPERSENSITIVITY [None]
  - FALL [None]
  - ANGIOEDEMA [None]
  - SYNCOPE [None]
  - SPEECH DISORDER [None]
  - DYSPNOEA [None]
  - UVULITIS [None]
  - OBSTRUCTIVE AIRWAYS DISORDER [None]
  - LOSS OF CONSCIOUSNESS [None]
  - RETCHING [None]
